FAERS Safety Report 19270025 (Version 1)
Quarter: 2021Q2

REPORT INFORMATION
  Report Type: Spontaneous
  Country: AR (occurrence: AR)
  Receive Date: 20210518
  Receipt Date: 20210518
  Transmission Date: 20210717
  Serious: Yes (Hospitalization)
  Sender: FDA-Public Use
  Company Number: AR-PFIZER INC-2021523217

PATIENT
  Age: 79 Year
  Sex: Male

DRUGS (1)
  1. INLYTA [Suspect]
     Active Substance: AXITINIB
     Indication: METASTATIC RENAL CELL CARCINOMA
     Dosage: 10 MG, DAILY
     Dates: start: 20151008

REACTIONS (3)
  - Asthenia [Unknown]
  - Dengue fever [Unknown]
  - Weight decreased [Unknown]

NARRATIVE: CASE EVENT DATE: 2021
